FAERS Safety Report 6407895-0 (Version None)
Quarter: 2009Q4

REPORT INFORMATION
  Report Type: 
  Country: None (occurrence: None)
  Receive Date: 20091016
  Receipt Date: 20091009
  Transmission Date: 20100525
  Serious: Yes (Disabling)
  Sender: FDA-Public Use
  Company Number: 402542

PATIENT
  Age: 12 Year
  Sex: Male

DRUGS (10)
  1. VINCRISTINE [Suspect]
     Indication: T-CELL LYMPHOMA STAGE IV
  2. METHOTREXATE [Concomitant]
  3. CYTARABINE [Concomitant]
  4. ETOPOSIDE [Concomitant]
  5. (ASPARAGINASE) [Concomitant]
  6. CYCLOPHOSPHAMIDE [Concomitant]
  7. (DAUNOMYCIN /00128201/) [Concomitant]
  8. DOXORUBICIN HCL [Concomitant]
  9. PREDNISONE TAB [Concomitant]
  10. THIOGUANINE [Concomitant]

REACTIONS (2)
  - DRUG TOXICITY [None]
  - NEUROPATHY PERIPHERAL [None]
